FAERS Safety Report 13058814 (Version 1)
Quarter: 2016Q4

REPORT INFORMATION
  Report Type: Spontaneous
  Country: US (occurrence: US)
  Receive Date: 20161223
  Receipt Date: 20161223
  Transmission Date: 20170207
  Serious: Yes (Hospitalization)
  Sender: FDA-Public Use
  Company Number: None

PATIENT
  Age: 82 Year
  Sex: Female

DRUGS (12)
  1. AMLODIPINE [Concomitant]
     Active Substance: AMLODIPINE BESYLATE
  2. METOLAZONE. [Concomitant]
     Active Substance: METOLAZONE
  3. CLONIDINE. [Concomitant]
     Active Substance: CLONIDINE
  4. SIMVASTATIN. [Concomitant]
     Active Substance: SIMVASTATIN
  5. SYMBICORT [Concomitant]
     Active Substance: BUDESONIDE\FORMOTEROL FUMARATE DIHYDRATE
  6. OMEPRAZOLE. [Concomitant]
     Active Substance: OMEPRAZOLE
  7. ACETAZOLAMID [Concomitant]
     Active Substance: ACETAZOLAMIDE
  8. SILDENAFIL 20MG TAB PFIZER [Suspect]
     Active Substance: SILDENAFIL
     Indication: PULMONARY ARTERIAL HYPERTENSION
     Route: 048
     Dates: start: 20150630
  9. CITALOPRAM [Concomitant]
     Active Substance: CITALOPRAM HYDROBROMIDE
  10. ACETYLCYST [Concomitant]
  11. KLOR-CON [Concomitant]
     Active Substance: POTASSIUM CHLORIDE
  12. METOPROLOL. [Concomitant]
     Active Substance: METOPROLOL

REACTIONS (1)
  - Hospitalisation [None]

NARRATIVE: CASE EVENT DATE: 20161205
